FAERS Safety Report 17662200 (Version 1)
Quarter: 2020Q2

REPORT INFORMATION
  Report Type: Report from Study
  Country: US (occurrence: US)
  Receive Date: 20200413
  Receipt Date: 20200413
  Transmission Date: 20200713
  Serious: Yes (Hospitalization, Other)
  Sender: FDA-Public Use
  Company Number: US-GLAXOSMITHKLINE-US2020GSK063341

PATIENT
  Age: 32 Year
  Sex: Male

DRUGS (1)
  1. BUPROPION HYDROCHLORIDE. [Suspect]
     Active Substance: BUPROPION HYDROCHLORIDE
     Indication: PRODUCT USED FOR UNKNOWN INDICATION
     Dosage: 27 G
     Route: 048

REACTIONS (5)
  - Overdose [Unknown]
  - Seizure [Unknown]
  - Toxicity to various agents [Unknown]
  - Tachycardia [Unknown]
  - Cardiac arrest [Unknown]
